FAERS Safety Report 8017541-0 (Version None)
Quarter: 2012Q1

REPORT INFORMATION
  Report Type: 
  Country: None (occurrence: None)
  Receive Date: 20120103
  Receipt Date: 20111230
  Transmission Date: 20120608
  Serious: Yes (Other)
  Sender: FDA-Public Use
  Company Number: US-SHIRE-ALL1-2011-04057

PATIENT
  Age: 6 Year
  Sex: Male

DRUGS (2)
  1. INTUNIV [Suspect]
     Indication: ATTENTION DEFICIT/HYPERACTIVITY DISORDER
     Dosage: 2 MG, 1X/DAY:QHS
     Route: 048
     Dates: start: 20110901, end: 20111001
  2. RISPERDAL [Concomitant]
     Indication: AGGRESSION
     Dosage: 0.5 MG, 3X/DAY:TID
     Route: 065
     Dates: start: 20090101

REACTIONS (1)
  - HOMICIDAL IDEATION [None]
